FAERS Safety Report 9547396 (Version 3)
Quarter: 2014Q4

REPORT INFORMATION
  Report Type: Spontaneous
  Country: US (occurrence: None)
  Receive Date: 20130606
  Receipt Date: 20141010
  Transmission Date: 20150529
  Serious: Yes (Hospitalization)
  Sender: FDA-Public Use
  Company Number: 163-POMAL-13043353

PATIENT
  Age: 70 Year
  Sex: Female
  Weight: 52.2 kg

DRUGS (11)
  1. HYDROCHLOROTHIAZIDE (HYDROCHLOROTHIAZIDE) [Concomitant]
     Active Substance: HYDROCHLOROTHIAZIDE
  2. SYNTHROID(LEVOTHYROXINE SODIUM) [Concomitant]
  3. ACYCLOVIR (ACICLOVIR) [Concomitant]
  4. DEXAMETHASONE (DEXAMETHASONE) [Concomitant]
     Active Substance: DEXAMETHASONE
  5. LYRICA [Concomitant]
     Active Substance: PREGABALIN
  6. POTASSIUM CL ER (POTASSIUM CHLORIDE) [Concomitant]
  7. ASPIRIN EC. C(ACETYLSALICYLIC ACID)(ENTERIC-COATED TABLET) [Concomitant]
  8. POMALYST [Suspect]
     Active Substance: POMALIDOMIDE
     Indication: PLASMA CELL MYELOMA
     Dosage: 4 MG, 21 IN 21 D, PO
     Route: 048
     Dates: start: 20130412
  9. PANTOPRAZOLE (PANTOPRAZOLE) [Concomitant]
     Active Substance: PANTOPRAZOLE SODIUM
  10. ALPRAZOLAM (ALPRAZOLAM) [Concomitant]
     Active Substance: ALPRAZOLAM
  11. GABAPENTIN (GABAPENTIN) [Concomitant]
     Active Substance: GABAPENTIN

REACTIONS (2)
  - Pulmonary thrombosis [None]
  - Dyspnoea [None]

NARRATIVE: CASE EVENT DATE: 201304
